FAERS Safety Report 14719482 (Version 1)
Quarter: 2018Q2

REPORT INFORMATION
  Report Type: Spontaneous
  Country: US (occurrence: US)
  Receive Date: 20180405
  Receipt Date: 20180405
  Transmission Date: 20180711
  Serious: No
  Sender: FDA-Public Use
  Company Number: US-PFIZER INC-2018131918

PATIENT
  Age: 70 Year
  Sex: Female
  Weight: 99.77 kg

DRUGS (1)
  1. DOFETILIDE. [Suspect]
     Active Substance: DOFETILIDE
     Indication: ARRHYTHMIA
     Dosage: 500 UG, 2X/DAY (TAKES EVERY 12 HOURS)
     Route: 048
     Dates: start: 20180314

REACTIONS (4)
  - Memory impairment [Not Recovered/Not Resolved]
  - Anxiety [Unknown]
  - Tremor [Recovering/Resolving]
  - Disturbance in attention [Not Recovered/Not Resolved]

NARRATIVE: CASE EVENT DATE: 20180317
